FAERS Safety Report 19761380 (Version 1)
Quarter: 2021Q3

REPORT INFORMATION
  Report Type: Report from Study
  Country: DK (occurrence: DK)
  Receive Date: 20210830
  Receipt Date: 20210830
  Transmission Date: 20211014
  Serious: Yes (Hospitalization)
  Sender: FDA-Public Use
  Company Number: DK-ROCHE-2896736

PATIENT
  Sex: Male

DRUGS (3)
  1. PERTUZUMAB. [Suspect]
     Active Substance: PERTUZUMAB
     Indication: HER2 GENE AMPLIFICATION
     Route: 065
     Dates: start: 20210806
  2. TRASTUZUMAB. [Suspect]
     Active Substance: TRASTUZUMAB
     Indication: HER2 GENE AMPLIFICATION
     Route: 065
     Dates: start: 20210806
  3. FURIX (DENMARK) [Concomitant]

REACTIONS (1)
  - Pleural effusion [Not Recovered/Not Resolved]

NARRATIVE: CASE EVENT DATE: 20210813
